FAERS Safety Report 11855701 (Version 1)
Quarter: 2015Q4

REPORT INFORMATION
  Report Type: Spontaneous
  Country: UA (occurrence: UA)
  Receive Date: 20151221
  Receipt Date: 20151221
  Transmission Date: 20160305
  Serious: Yes (Hospitalization)
  Sender: FDA-Public Use
  Company Number: UA-BIOVITRUM-2015UA0746

PATIENT
  Age: 12 Day
  Sex: Male
  Weight: 3.6 kg

DRUGS (3)
  1. ORFADIN [Suspect]
     Active Substance: NITISINONE
     Dates: start: 20151214
  2. ORFADIN [Suspect]
     Active Substance: NITISINONE
     Dates: start: 20151127, end: 20151213
  3. ORFADIN [Suspect]
     Active Substance: NITISINONE
     Indication: TYROSINAEMIA
     Dates: start: 20151112, end: 20151126

REACTIONS (11)
  - Lethargy [Unknown]
  - Infantile spitting up [Not Recovered/Not Resolved]
  - Abdominal distension [Not Recovered/Not Resolved]
  - Hydrocele [Not Recovered/Not Resolved]
  - Decreased appetite [Unknown]
  - Anaemia [Not Recovered/Not Resolved]
  - Succinylacetone increased [Unknown]
  - Hepatic failure [Not Recovered/Not Resolved]
  - Weight gain poor [Not Recovered/Not Resolved]
  - Vomiting [Not Recovered/Not Resolved]
  - Anxiety [Not Recovered/Not Resolved]

NARRATIVE: CASE EVENT DATE: 201511
